FAERS Safety Report 15465539 (Version 1)
Quarter: 2018Q4

REPORT INFORMATION
  Report Type: Spontaneous
  Country: US (occurrence: US)
  Receive Date: 20181004
  Receipt Date: 20181004
  Transmission Date: 20190204
  Serious: Yes (Other)
  Sender: FDA-Public Use
  Company Number: US-PRINSTON PHARMACEUTICAL INC.-2018PRN01432

PATIENT

DRUGS (1)
  1. ARIPIPRAZOLE. [Suspect]
     Active Substance: ARIPIPRAZOLE
     Indication: SCHIZOPHRENIA
     Dosage: SINGLE INTRAMUSCULAR 662 MG DOSE OF ARIPIPRAZOLE OR A SINGLE 30 MG ORAL DOSE OF ARIPIPRAZOLE
     Route: 065

REACTIONS (1)
  - Schizoaffective disorder [Unknown]
